FAERS Safety Report 5830827-0 (Version None)
Quarter: 2008Q3

REPORT INFORMATION
  Report Type: 
  Country: None (occurrence: None)
  Receive Date: 20080801
  Receipt Date: 20080312
  Transmission Date: 20090109
  Serious: Yes (Other)
  Sender: FDA-Public Use
  Company Number: US-BRISTOL-MYERS SQUIBB COMPANY-14017313

PATIENT
  Age: 73 Year
  Sex: Female

DRUGS (22)
  1. COUMADIN [Suspect]
     Indication: ATRIAL FIBRILLATION
     Route: 048
     Dates: end: 19960101
  2. PLAVIX [Suspect]
     Indication: CORONARY ARTERY DISEASE
     Route: 048
     Dates: start: 20071126
  3. XOPENEX [Concomitant]
     Dosage: NUMBER OF DOSAGES IS TAKEN AS EVERY 4 HOUR, AS NECESSARY.
  4. LORAZEPAM [Concomitant]
  5. PROTONIX [Concomitant]
     Route: 065
  6. LEXAPRO [Concomitant]
     Route: 065
  7. VICODIN [Concomitant]
     Dosage: 1 DOSAGE FORM = 5-500 MG.
     Route: 065
  8. PULMICORT-100 [Concomitant]
     Dosage: 1 DOSAGE FORM = 0.25 MG/2ML UTD.
     Route: 065
  9. ISOSORBIDE MONONITRATE [Concomitant]
     Route: 065
  10. COREG [Concomitant]
     Route: 065
  11. GLYBURIDE [Concomitant]
     Route: 065
  12. MUCOMYST [Concomitant]
     Dosage: 20 PERCENT UTD.
     Route: 065
  13. PREDNISONE [Concomitant]
     Route: 065
  14. MIRAPEX [Concomitant]
     Route: 065
  15. LASIX [Concomitant]
     Route: 065
  16. POTASSIUM CHLORIDE [Concomitant]
     Route: 065
  17. IPRATROPIUM BROMIDE [Concomitant]
     Dosage: 0.02%, Q4-6 HOUR.
     Route: 065
  18. FAMOTIDINE [Concomitant]
     Route: 065
  19. ALBUTEROL SULFATE [Concomitant]
     Dosage: 1 DOSAGE FORM = 2.5 MG/3 ML UTD.
     Route: 065
  20. SODIUM CHLORIDE [Concomitant]
     Dosage: 0.9 PERCENT UTD.
     Route: 065
  21. DIGOXIN [Concomitant]
     Route: 065
  22. HUMALOG [Concomitant]
     Dosage: 1 DOSAGE FORM = 100 UNIT/ML.
     Route: 058

REACTIONS (1)
  - INTERNATIONAL NORMALISED RATIO INCREASED [None]
